FAERS Safety Report 19588640 (Version 1)
Quarter: 2021Q3

REPORT INFORMATION
  Report Type: Spontaneous
  Country: US (occurrence: US)
  Receive Date: 20210721
  Receipt Date: 20210721
  Transmission Date: 20211014
  Serious: No
  Sender: FDA-Public Use
  Company Number: None

PATIENT
  Age: 47 Year
  Sex: Male

DRUGS (1)
  1. COCOA PEBBLEZ TREATS (CBD\DELTA 8?THC) [Suspect]
     Active Substance: CANNABIDIOL\.DELTA.8-TETRAHYDROCANNABINOL\HERBALS

REACTIONS (3)
  - Unresponsive to stimuli [None]
  - Product quality issue [None]
  - Overdose [None]

NARRATIVE: CASE EVENT DATE: 20210702
